FAERS Safety Report 21922190 (Version 2)
Quarter: 2023Q1

REPORT INFORMATION
  Report Type: Spontaneous
  Country: US (occurrence: US)
  Receive Date: 20230128
  Receipt Date: 20230313
  Transmission Date: 20230418
  Serious: No
  Sender: FDA-Public Use
  Company Number: US-GILEAD-2023-0614398

PATIENT
  Age: 53 Year
  Sex: Male

DRUGS (1)
  1. TRUVADA [Suspect]
     Active Substance: EMTRICITABINE\TENOFOVIR DISOPROXIL FUMARATE
     Indication: Prophylaxis against HIV infection
     Dosage: FOR 28 DAYS
     Route: 065

REACTIONS (4)
  - Flatulence [Unknown]
  - Faeces discoloured [Unknown]
  - Abdominal pain [Unknown]
  - Nasopharyngitis [Unknown]
